FAERS Safety Report 10305886 (Version 1)
Quarter: 2014Q3

REPORT INFORMATION
  Report Type: Report from Study
  Country: DE (occurrence: DE)
  Receive Date: 20140715
  Receipt Date: 20140715
  Transmission Date: 20150326
  Serious: No
  Sender: FDA-Public Use
  Company Number: PHHY2014DE083775

PATIENT
  Sex: Male
  Weight: 101 kg

DRUGS (12)
  1. LISINOPRIL. [Concomitant]
     Active Substance: LISINOPRIL
     Dates: start: 20020401, end: 20110421
  2. DURACARE [Concomitant]
     Dates: start: 20010401, end: 20110421
  3. AMN107 [Suspect]
     Active Substance: NILOTINIB
     Dosage: 800 MG, PER DAY
     Route: 048
     Dates: start: 20090626
  4. AMN107 [Suspect]
     Active Substance: NILOTINIB
     Dosage: 800 MG, PER DAY
     Route: 048
     Dates: start: 20080711
  5. AMN107 [Suspect]
     Active Substance: NILOTINIB
     Dosage: 800 MG, PER DAY
     Route: 048
     Dates: start: 20081008
  6. AMN107 [Suspect]
     Active Substance: NILOTINIB
     Indication: CHRONIC MYELOID LEUKAEMIA
     Dosage: 400 MG, PER DAY
     Route: 048
     Dates: start: 20080614
  7. AMN107 [Suspect]
     Active Substance: NILOTINIB
     Dosage: 800 MG, PER DAY
     Route: 048
     Dates: start: 20100112
  8. TRAMAL [Concomitant]
     Active Substance: TRAMADOL
     Dates: start: 20020401, end: 20110421
  9. TAVANIC [Concomitant]
     Active Substance: LEVOFLOXACIN
     Dates: start: 20080626, end: 20080710
  10. AMN107 [Suspect]
     Active Substance: NILOTINIB
     Dosage: 800 MG, PER ADY
     Route: 048
     Dates: start: 20080827
  11. AMN107 [Suspect]
     Active Substance: NILOTINIB
     Dosage: 400 MG, PER DAY
     Route: 048
     Dates: start: 20090108
  12. METODURA [Concomitant]
     Dates: start: 20020401, end: 20110421

REACTIONS (2)
  - Rash [Recovered/Resolved]
  - Hyperhidrosis [Recovered/Resolved]

NARRATIVE: CASE EVENT DATE: 20090827
